FAERS Safety Report 25213657 (Version 1)
Quarter: 2025Q2

REPORT INFORMATION
  Report Type: Spontaneous
  Country: US (occurrence: None)
  Receive Date: 20250417
  Receipt Date: 20250417
  Transmission Date: 20250716
  Serious: No
  Sender: FDA-CTU
  Company Number: None

PATIENT
  Age: 85 Year
  Sex: Male
  Weight: 79 kg

DRUGS (1)
  1. METOPROLOL SUCCINATE [Suspect]
     Active Substance: METOPROLOL SUCCINATE
     Indication: Cardiac failure congestive
     Dosage: FREQUENCY : DAILY;?
     Route: 048

REACTIONS (6)
  - Bradycardia [None]
  - Dizziness [None]
  - Fall [None]
  - Head injury [None]
  - Subdural haematoma [None]
  - Syncope [None]

NARRATIVE: CASE EVENT DATE: 20240724
